FAERS Safety Report 8943314 (Version 2)
Quarter: 2013Q2

REPORT INFORMATION
  Report Type: Spontaneous
  Country: BR (occurrence: BR)
  Receive Date: 20121204
  Receipt Date: 20130606
  Transmission Date: 20140414
  Serious: Yes (Other)
  Sender: FDA-Public Use
  Company Number: BR-AMGEN-BRASP2012076870

PATIENT
  Age: 76 Year
  Sex: Female
  Weight: 70 kg

DRUGS (13)
  1. ENBREL [Suspect]
     Indication: RHEUMATOID ARTHRITIS
     Dosage: 50 MG, WEEKLY
     Route: 058
  2. ENBREL [Suspect]
     Dosage: UNK
     Route: 065
  3. PREDNISOLONE [Concomitant]
     Dosage: UNK
  4. ARAVA [Concomitant]
     Dosage: UNK
  5. PRESSOTEC [Concomitant]
     Dosage: UNK
  6. MARCOUMAR [Concomitant]
     Dosage: UNK
  7. MODURETIC [Concomitant]
     Dosage: UNK
  8. GLIMEPIRIDE [Concomitant]
     Dosage: UNK
  9. CYMBALTA [Concomitant]
     Dosage: UNK
  10. ADDERA D3 [Concomitant]
     Dosage: UNK
  11. CALCIUM [Concomitant]
     Dosage: UNK
  12. BONVIVA [Concomitant]
     Dosage: UNK
  13. RETEMIC [Concomitant]
     Dosage: UNK

REACTIONS (5)
  - Rheumatoid arthritis [Unknown]
  - Wrong technique in drug usage process [Unknown]
  - Injection site hypersensitivity [Not Recovered/Not Resolved]
  - Arthralgia [Unknown]
  - Drug ineffective [Unknown]
